FAERS Safety Report 24963465 (Version 1)
Quarter: 2025Q1

REPORT INFORMATION
  Report Type: Report from Study
  Country: JP (occurrence: JP)
  Receive Date: 20250213
  Receipt Date: 20250213
  Transmission Date: 20250408
  Serious: Yes (Hospitalization, Other)
  Sender: EMD SERONO INC
  Company Number: JP-Merck Healthcare KGaA-2025005600

PATIENT
  Sex: Female

DRUGS (2)
  1. GONAL-F RFF [Suspect]
     Active Substance: FOLLITROPIN
     Indication: Ovulation induction
  2. FOLLITROPIN DELTA [Suspect]
     Active Substance: FOLLITROPIN DELTA
     Indication: Ovulation induction

REACTIONS (2)
  - Epistaxis [Recovered/Resolved with Sequelae]
  - Ovarian cancer [Recovered/Resolved with Sequelae]
